FAERS Safety Report 19085810 (Version 2)
Quarter: 2021Q2

REPORT INFORMATION
  Report Type: Spontaneous
  Country: JP (occurrence: JP)
  Receive Date: 20210402
  Receipt Date: 20210424
  Transmission Date: 20210717
  Serious: Yes (Death, Other)
  Sender: FDA-Public Use
  Company Number: JP-ASTRAZENECA-2021A060611

PATIENT
  Age: 70 Year
  Sex: Female

DRUGS (2)
  1. IMFINZI [Suspect]
     Active Substance: DURVALUMAB
     Indication: NON-SMALL CELL LUNG CANCER
     Dosage: 10 MG/KG 1,2 WEEKS
     Route: 042
     Dates: start: 20210127, end: 20210210
  2. ETOPOSIDE. [Concomitant]
     Active Substance: ETOPOSIDE
     Indication: SMALL CELL LUNG CANCER
     Dosage: DAY 1, 2, AND 3 OF EACH CYCLE, DOSE UNKNOWN
     Dates: start: 20210112

REACTIONS (4)
  - Thrombophlebitis migrans [Fatal]
  - Atrial fibrillation [Fatal]
  - Haemoptysis [Fatal]
  - Radiation pneumonitis [Not Recovered/Not Resolved]

NARRATIVE: CASE EVENT DATE: 2021
